FAERS Safety Report 10041472 (Version 1)
Quarter: 2014Q1

REPORT INFORMATION
  Report Type: Spontaneous
  Country: US (occurrence: None)
  Receive Date: 20140325
  Receipt Date: 20140325
  Transmission Date: 20141002
  Serious: Yes (Hospitalization)
  Sender: FDA-Public Use
  Company Number: 2013000563

PATIENT
  Age: 33 Year
  Sex: Male
  Weight: 110 kg

DRUGS (3)
  1. ACEON (PERINDOPRIL ERBUMINE) TABLET, 2MG [Suspect]
     Indication: HYPERTENSION
     Dosage: 1 DF, QD, ORAL
     Route: 048
     Dates: start: 199501
  2. CARDIZEM [Suspect]
     Indication: HYPERTENSION
     Route: 048
  3. LITHIUM CARBONATE (LITHIUM CARBONATE) [Suspect]
     Indication: PRODUCT USED FOR UNKNOWN INDICATION
     Dosage: ORAL
     Route: 048

REACTIONS (11)
  - Toxicity to various agents [None]
  - Drug level increased [None]
  - Tremor [None]
  - Visual impairment [None]
  - Photophobia [None]
  - Nausea [None]
  - Drug interaction [None]
  - Confusional state [None]
  - Headache [None]
  - Dizziness [None]
  - Asthenia [None]
